FAERS Safety Report 9647696 (Version 3)
Quarter: 2013Q4

REPORT INFORMATION
  Report Type: Spontaneous
  Country: DE (occurrence: DE)
  Receive Date: 20131028
  Receipt Date: 20131231
  Transmission Date: 20140711
  Serious: Yes (Death, Hospitalization)
  Sender: FDA-Public Use
  Company Number: DE-JNJFOC-20130716566

PATIENT
  Age: 85 Year
  Sex: Female
  Weight: 49.89 kg

DRUGS (4)
  1. XARELTO [Suspect]
     Indication: PRODUCT USED FOR UNKNOWN INDICATION
     Route: 048
  2. FENTANYL [Concomitant]
     Indication: RHEUMATIC DISORDER
     Dosage: 50
     Route: 065
  3. PREDNISON [Concomitant]
     Indication: RHEUMATIC DISORDER
     Route: 065
  4. MTX [Concomitant]
     Route: 065

REACTIONS (5)
  - Muscle haemorrhage [Fatal]
  - Erysipelas [Fatal]
  - Cellulitis [Fatal]
  - Haemorrhage subcutaneous [Fatal]
  - Prothrombin time abnormal [Fatal]
